FAERS Safety Report 19497726 (Version 3)
Quarter: 2021Q3

REPORT INFORMATION
  Report Type: Spontaneous
  Country: US (occurrence: US)
  Receive Date: 20210706
  Receipt Date: 20210910
  Transmission Date: 20211014
  Serious: Yes (Other)
  Sender: FDA-Public Use
  Company Number: US-BAYER-2021-167702

PATIENT
  Sex: Male

DRUGS (4)
  1. KOVALTRY [Suspect]
     Active Substance: ANTIHEMOPHILIC FACTOR, HUMAN RECOMBINANT
     Indication: FACTOR VIII DEFICIENCY
     Dosage: UNK
     Route: 042
  2. KOVALTRY [Suspect]
     Active Substance: ANTIHEMOPHILIC FACTOR, HUMAN RECOMBINANT
     Indication: FACTOR VIII DEFICIENCY
     Dosage: 3000 U (+/? 10%), 4IW; EVERY 36 HOURS (4 TIMES A WEEK) AND DAILY AS NEEDED FOR BLEEDS); PROPHYLAXIS
     Route: 042
     Dates: start: 201905
  3. KOVALTRY [Suspect]
     Active Substance: ANTIHEMOPHILIC FACTOR, HUMAN RECOMBINANT
     Indication: FACTOR VIII DEFICIENCY
     Dosage: 4 DF, ONCE; TREATMENT FOR R ELBOW BLEED
     Route: 042
  4. KOVALTRY [Suspect]
     Active Substance: ANTIHEMOPHILIC FACTOR, HUMAN RECOMBINANT
     Indication: FACTOR VIII DEFICIENCY
     Dosage: USED A TOTAL OF 3?4 DOSES TO TREAT RIGHT ELBOW, RIGHT FOOT, AND LEFT KNEE BLEEDS
     Route: 042

REACTIONS (2)
  - Haemarthrosis [None]
  - Haemorrhage subcutaneous [None]
